FAERS Safety Report 21486946 (Version 2)
Quarter: 2022Q4

REPORT INFORMATION
  Report Type: Spontaneous
  Country: US (occurrence: US)
  Receive Date: 20221020
  Receipt Date: 20221021
  Transmission Date: 20230112
  Serious: No
  Sender: FDA-Public Use
  Company Number: US-PFIZER INC-PV202200083887

PATIENT
  Age: 52 Year
  Sex: Female

DRUGS (12)
  1. OXALIPLATIN [Suspect]
     Active Substance: OXALIPLATIN
     Indication: Colon cancer metastatic
     Dosage: 6 CYCLES
     Dates: start: 201908, end: 201911
  2. OXALIPLATIN [Suspect]
     Active Substance: OXALIPLATIN
     Dosage: 6 CYCLES
     Dates: start: 202001, end: 202003
  3. OXALIPLATIN [Suspect]
     Active Substance: OXALIPLATIN
     Dosage: 6 CYCLES
     Dates: start: 202012, end: 202104
  4. PANTOPRAZOLE [Suspect]
     Active Substance: PANTOPRAZOLE
     Dosage: 40 MG
  5. FLUOROURACIL [Suspect]
     Active Substance: FLUOROURACIL
     Indication: Colon cancer metastatic
     Dosage: 6 CYCLES
     Dates: start: 201908, end: 201911
  6. FLUOROURACIL [Suspect]
     Active Substance: FLUOROURACIL
     Dosage: 6 CYCLES
     Dates: start: 202001, end: 202003
  7. FLUOROURACIL [Suspect]
     Active Substance: FLUOROURACIL
     Dosage: 6 CYCLES
     Dates: start: 202012, end: 202104
  8. ATORVASTATIN CALCIUM [Concomitant]
     Active Substance: ATORVASTATIN CALCIUM
     Indication: Colon cancer metastatic
     Dosage: UNK
     Dates: start: 202001, end: 202003
  9. PANTOPRAZOLE [Concomitant]
     Active Substance: PANTOPRAZOLE
     Dosage: 40 MG
  10. SYNTHROID [Concomitant]
     Active Substance: LEVOTHYROXINE SODIUM
     Dosage: 75 MG, 2X/WEEK (M AND TH)
  11. SYNTHROID [Concomitant]
     Active Substance: LEVOTHYROXINE SODIUM
     Dosage: 88 MG (SUN, T, W, F, SAT)
  12. URSODIOL [Concomitant]
     Active Substance: URSODIOL
     Dosage: 300 MG, 2X/DAY

REACTIONS (1)
  - Neoplasm progression [Unknown]

NARRATIVE: CASE EVENT DATE: 20211101
